FAERS Safety Report 21229282 (Version 3)
Quarter: 2022Q4

REPORT INFORMATION
  Report Type: Report from Study
  Country: CO (occurrence: CO)
  Receive Date: 20220818
  Receipt Date: 20221018
  Transmission Date: 20230113
  Serious: Yes (Hospitalization, Other)
  Sender: FDA-Public Use
  Company Number: CO-ABBVIE-22K-036-4486115-00

PATIENT
  Sex: Male
  Weight: 82 kg

DRUGS (8)
  1. HUMIRA [Suspect]
     Active Substance: ADALIMUMAB
     Indication: Rheumatoid arthritis
     Dosage: FORM STRENGTH: 40 MG
     Route: 058
     Dates: end: 20220408
  2. HUMIRA [Suspect]
     Active Substance: ADALIMUMAB
  3. CALCIUM [Concomitant]
     Active Substance: CALCIUM
     Indication: Product used for unknown indication
     Dosage: STARTED BEFORE HUMIRA?1 DOSAGE FORMS
     Route: 048
  4. METHOTREXATE [Concomitant]
     Active Substance: METHOTREXATE
     Indication: Rheumatoid arthritis
     Dosage: STARTED BEFORE HUMIRA?3 ON SATURDAYS 3 ON SUNDAYS
     Route: 048
  5. LOSARTAN [Concomitant]
     Active Substance: LOSARTAN
     Indication: Hypertension
     Route: 048
  6. PREDNISOLONE [Concomitant]
     Active Substance: PREDNISOLONE
     Indication: Hypertension
     Dosage: STARTED BEFORE HUMIRA.?30 MINUTES TO 1 HOUR AFTER OF LOSARTAN
     Route: 048
  7. ACETAMINOPHEN\CODEINE PHOSPHATE [Concomitant]
     Active Substance: ACETAMINOPHEN\CODEINE PHOSPHATE
     Indication: Product used for unknown indication
  8. HYDROCODONE BITARTRATE AND ACETAMINOPHEN [Concomitant]
     Active Substance: ACETAMINOPHEN\HYDROCODONE BITARTRATE
     Indication: Product used for unknown indication
     Route: 048

REACTIONS (14)
  - Colonic abscess [Recovering/Resolving]
  - Inflammation [Recovering/Resolving]
  - Pyrexia [Recovering/Resolving]
  - Hepatic infection [Recovering/Resolving]
  - Road traffic accident [Recovering/Resolving]
  - General physical health deterioration [Not Recovered/Not Resolved]
  - Inflammation [Not Recovered/Not Resolved]
  - Bacterial infection [Recovering/Resolving]
  - Pain [Not Recovered/Not Resolved]
  - Liver abscess [Recovering/Resolving]
  - Limb discomfort [Not Recovered/Not Resolved]
  - Gastrointestinal infection [Recovering/Resolving]
  - Rheumatoid arthritis [Unknown]
  - Malaise [Recovering/Resolving]

NARRATIVE: CASE EVENT DATE: 20220101
